FAERS Safety Report 7817989 (Version 6)
Quarter: 2013Q2

REPORT INFORMATION
  Report Type: Report from Study
  Country: IT (occurrence: IT)
  Receive Date: 20110217
  Receipt Date: 20130510
  Transmission Date: 20140414
  Serious: Yes (Hospitalization)
  Sender: FDA-Public Use
  Company Number: PHHO2011IT02614

PATIENT
  Age: 40 Year
  Sex: Female
  Weight: 57 kg

DRUGS (2)
  1. FTY 720 [Suspect]
     Indication: MULTIPLE SCLEROSIS
     Dosage: 0.5 MG, DAILY
     Route: 048
     Dates: start: 20101206, end: 20110208
  2. MODURETIC [Concomitant]
     Indication: HYPERTENSION

REACTIONS (9)
  - Cardiac failure [Recovered/Resolved with Sequelae]
  - Hypertensive crisis [Recovering/Resolving]
  - Dyspnoea exertional [Recovering/Resolving]
  - Chest pain [Recovering/Resolving]
  - Tachycardia [Recovering/Resolving]
  - Hypertension [Recovering/Resolving]
  - Rash [Recovering/Resolving]
  - Bronchospasm [Recovering/Resolving]
  - Bundle branch block right [Recovering/Resolving]
